FAERS Safety Report 21198401 (Version 1)
Quarter: 2022Q3

REPORT INFORMATION
  Report Type: Spontaneous
  Country: US (occurrence: US)
  Receive Date: 20220811
  Receipt Date: 20220811
  Transmission Date: 20221027
  Serious: No
  Sender: FDA-Public Use
  Company Number: US-TWI PHARMACEUTICAL, INC-2022SCTW000058

PATIENT

DRUGS (2)
  1. DILTIAZEM HYDROCHLORIDE [Suspect]
     Active Substance: DILTIAZEM HYDROCHLORIDE
     Indication: Hypertension
     Dosage: 2 DOSAGE FORM, OD
     Route: 048
     Dates: start: 20220707, end: 20220713
  2. ATACAND [Concomitant]
     Active Substance: CANDESARTAN CILEXETIL
     Indication: Hypertension
     Dosage: 32 MG, OD,  IN THE MORNING FOR 25 YEARS
     Route: 065

REACTIONS (5)
  - Dysstasia [Recovered/Resolved]
  - Gait disturbance [Recovered/Resolved]
  - Heart rate increased [Recovered/Resolved]
  - Product substitution issue [Unknown]
  - Blood pressure decreased [Recovered/Resolved]

NARRATIVE: CASE EVENT DATE: 20220707
